FAERS Safety Report 5572837-7 (Version None)
Quarter: 2007Q4

REPORT INFORMATION
  Report Type: 
  Country: None (occurrence: None)
  Receive Date: 20071223
  Receipt Date: 20071218
  Transmission Date: 20080405
  Serious: Yes (Death, Hospitalization)
  Sender: FDA-Public Use
  Company Number: PHHY2007BR00986

PATIENT
  Age: 80 Year
  Sex: Female

DRUGS (3)
  1. ANCORON [Concomitant]
     Indication: CARDIAC DISORDER
     Dates: start: 20020101
  2. LAXATIVES [Concomitant]
  3. ZELNORM [Suspect]
     Indication: GASTROINTESTINAL DISORDER
     Route: 048
     Dates: start: 20061101, end: 20070301

REACTIONS (1)
  - THROMBOSIS [None]
